FAERS Safety Report 8777775 (Version 1)
Quarter: 2012Q4

REPORT INFORMATION
  Report Type: 
  Country: US (occurrence: US)
  Receive Date: 20120912
  Receipt Date: 20120912
  Transmission Date: 20130627
  Serious: No
  Sender: FDA-Public Use
  Company Number: US-VERTEX PHARMACEUTICAL INC.-AE-2012-004613

PATIENT

DRUGS (4)
  1. INCIVEK [Suspect]
     Indication: HEPATITIS C
     Route: 048
     Dates: start: 20120321, end: 20120612
  2. RIBAVIRIN [Concomitant]
     Indication: HEPATITIS C
     Dates: start: 20120321
  3. RIBAVIRIN [Concomitant]
     Dates: start: 20120613
  4. PEGASYS [Concomitant]
     Indication: HEPATITIS C
     Route: 058
     Dates: start: 20120321

REACTIONS (11)
  - Pyrexia [Recovered/Resolved]
  - Migraine [Recovered/Resolved]
  - Oral herpes [Unknown]
  - Chills [Recovered/Resolved]
  - Rash pruritic [Not Recovered/Not Resolved]
  - Vomiting [Recovered/Resolved]
  - Rectal haemorrhage [Unknown]
  - Anorectal discomfort [Unknown]
  - Anal pruritus [Unknown]
  - Pruritus generalised [Not Recovered/Not Resolved]
  - Red blood cell count decreased [Not Recovered/Not Resolved]
